FAERS Safety Report 7409338-7 (Version None)
Quarter: 2011Q1

REPORT INFORMATION
  Report Type: 
  Country: None (occurrence: None)
  Receive Date: 20110301
  Receipt Date: 20100929
  Transmission Date: 20110831
  Serious: Yes (Other)
  Sender: FDA-Public Use
  Company Number: RB-16017-2010

PATIENT
  Sex: Male

DRUGS (5)
  1. PRENATAL VITAMINS [Concomitant]
  2. VISTARIL [Concomitant]
  3. AMITRIPTYLINE HCL [Concomitant]
  4. SUBOXONE [Suspect]
     Indication: DRUG DEPENDENCE
     Dosage: (8 MG QD TRANSPLACENTAL), (WEANING OFF SUBOXONE ORAL)
     Route: 064
     Dates: start: 20100621, end: 20100902
  5. SUBOXONE [Suspect]
     Indication: DRUG DEPENDENCE
     Dosage: (8 MG QD TRANSPLACENTAL), (WEANING OFF SUBOXONE ORAL)
     Route: 064
     Dates: start: 20100101

REACTIONS (2)
  - DRUG EXPOSURE DURING PREGNANCY [None]
  - DRUG WITHDRAWAL SYNDROME [None]
